FAERS Safety Report 5229311-7 (Version None)
Quarter: 2007Q2

REPORT INFORMATION
  Report Type: 
  Country: None (occurrence: None)
  Receive Date: 20070131
  Receipt Date: 20070123
  Transmission Date: 20071010
  Serious: Yes (Hospitalization, Other)
  Sender: FDA-Public Use
  Company Number: 163-21880-06080251

PATIENT
  Age: 76 Year
  Sex: Male

DRUGS (3)
  1. REVLIMID [Suspect]
     Indication: MYELOFIBROSIS
     Dosage: 10 MG, 1 IN 1 D, ORAL
     Route: 048
     Dates: start: 20060707
  2. ARANESP (DARBEPOPETIN ALFA) [Concomitant]
  3. ALKERAN [Suspect]
     Indication: DRUG USE FOR UNKNOWN INDICATION

REACTIONS (5)
  - ASTHENIA [None]
  - FALL [None]
  - OEDEMA PERIPHERAL [None]
  - PLATELET COUNT DECREASED [None]
  - REFUSAL OF TREATMENT BY PATIENT [None]
